FAERS Safety Report 5491820-3 (Version None)
Quarter: 2007Q4

REPORT INFORMATION
  Report Type: 
  Country: None (occurrence: None)
  Receive Date: 20071019
  Receipt Date: 20071019
  Transmission Date: 20080405
  Serious: Yes (Hospitalization)
  Sender: FDA-Public Use
  Company Number: None

PATIENT
  Sex: Male
  Weight: 212 kg

DRUGS (8)
  1. CYCLOPHOSPHAMIDE [Suspect]
     Dosage: 4280 MG
     Dates: end: 20070922
  2. DOXORUBICIN HYDROCHLORIDE [Suspect]
     Dosage: 108 MG
     Dates: end: 20070922
  3. LEUCOVORIN CALCIUM [Suspect]
     Dosage: 315 MG
     Dates: end: 20070923
  4. MESNA [Suspect]
     Dosage: 5100 MG
     Dates: end: 20070922
  5. METHOTREXATE [Suspect]
     Dosage: 642 MG
     Dates: end: 20070921
  6. PREDNISONE [Suspect]
     Dosage: 1075 MG
     Dates: end: 20070925
  7. RITUXIMAB (MOAB C2B8 ANTI CD20, CHIMERIC) [Suspect]
     Dosage: 800 MG
     Dates: end: 20070918
  8. VINCRISTINE SULFATE [Suspect]
     Dosage: 2 MG
     Dates: end: 20070922

REACTIONS (10)
  - BLOOD CULTURE POSITIVE [None]
  - CATHETER SITE OEDEMA [None]
  - CATHETER SITE PAIN [None]
  - EXCORIATION [None]
  - NEUTROPHIL COUNT DECREASED [None]
  - SKIN CANDIDA [None]
  - STAPHYLOCOCCAL IDENTIFICATION TEST POSITIVE [None]
  - THROMBOCYTOPENIA [None]
  - VENOUS THROMBOSIS LIMB [None]
  - WOUND SECRETION [None]
